FAERS Safety Report 23186032 (Version 2)
Quarter: 2024Q1

REPORT INFORMATION
  Report Type: Spontaneous
  Country: JP (occurrence: JP)
  Receive Date: 20231115
  Receipt Date: 20240102
  Transmission Date: 20240409
  Serious: No
  Sender: FDA-Public Use
  Company Number: JP-PFIZER INC-PV202300157575

PATIENT
  Age: 15 Year
  Sex: Female
  Weight: 40 kg

DRUGS (2)
  1. NGENLA [Suspect]
     Active Substance: SOMATROGON-GHLA
     Indication: Growth hormone deficiency
     Dosage: 26 MG, WEEKLY, IN 2 DIVIDED DOSES
     Route: 058
     Dates: start: 20230630
  2. NGENLA [Suspect]
     Active Substance: SOMATROGON-GHLA
     Indication: Dwarfism

REACTIONS (1)
  - Injection site pain [Recovering/Resolving]

NARRATIVE: CASE EVENT DATE: 20230630
